FAERS Safety Report 5687881-9 (Version None)
Quarter: 2008Q1

REPORT INFORMATION
  Report Type: 
  Country: None (occurrence: None)
  Receive Date: 20080328
  Receipt Date: 20070130
  Transmission Date: 20080703
  Serious: Yes (Other)
  Sender: FDA-Public Use
  Company Number: US-BAYER-US-2006-034905

PATIENT
  Age: 30 Year
  Sex: Female
  Weight: 124 kg

DRUGS (1)
  1. MIRENA [Suspect]
     Indication: CONTRACEPTION
     Route: 015
     Dates: start: 20041122, end: 20061108

REACTIONS (2)
  - ABORTION MISSED [None]
  - PREGNANCY WITH CONTRACEPTIVE DEVICE [None]
